FAERS Safety Report 5193081-1 (Version None)
Quarter: 2006Q4

REPORT INFORMATION
  Report Type: 
  Country: None (occurrence: None)
  Receive Date: 20061228
  Receipt Date: 20060410
  Transmission Date: 20070319
  Serious: No
  Sender: FDA-Public Use
  Company Number: US-GLAXOSMITHKLINE-A0601168A

PATIENT
  Sex: Male

DRUGS (4)
  1. AVODART [Suspect]
     Indication: BENIGN PROSTATIC HYPERPLASIA
     Dosage: .5MG PER DAY
     Route: 048
  2. HYTRIN [Concomitant]
  3. TOPROL-XL [Concomitant]
  4. DIOVAN [Concomitant]

REACTIONS (4)
  - GENITAL RASH [None]
  - RASH [None]
  - SKIN IRRITATION [None]
  - URTICARIA [None]
